FAERS Safety Report 22538065 (Version 2)
Quarter: 2023Q2

REPORT INFORMATION
  Report Type: Report from Study
  Country: CA (occurrence: CA)
  Receive Date: 20230608
  Receipt Date: 20230616
  Transmission Date: 20230721
  Serious: Yes (Hospitalization)
  Sender: FDA-Public Use
  Company Number: CA-ABBVIE-5281424

PATIENT
  Sex: Male

DRUGS (1)
  1. HUMIRA [Suspect]
     Active Substance: ADALIMUMAB
     Indication: Crohn^s disease
     Dosage: APPROXIMATE STOP DATE : 2019
     Route: 058
     Dates: start: 2018

REACTIONS (2)
  - Illness [Recovering/Resolving]
  - Therapeutic product effect decreased [Unknown]
